FAERS Safety Report 22136163 (Version 1)
Quarter: 2023Q1

REPORT INFORMATION
  Report Type: Spontaneous
  Country: ID (occurrence: None)
  Receive Date: 20230324
  Receipt Date: 20230324
  Transmission Date: 20230418
  Serious: Yes (Other)
  Sender: FDA-Public Use
  Company Number: 2023A068690

PATIENT
  Age: 55 Year
  Sex: Female
  Weight: 93 kg

DRUGS (6)
  1. ROSUVASTATIN [Suspect]
     Active Substance: ROSUVASTATIN
     Route: 048
  2. VALSARTAN [Concomitant]
     Active Substance: VALSARTAN
  3. RIVAROXABAN [Concomitant]
     Active Substance: RIVAROXABAN
  4. BISOPROLOL [Concomitant]
     Active Substance: BISOPROLOL
  5. GLICLAZIDE SLOW RELEASE [Concomitant]
  6. SPIRONOLAKTONE [Concomitant]

REACTIONS (2)
  - Cardiac failure [Unknown]
  - Atrial fibrillation [Unknown]

NARRATIVE: CASE EVENT DATE: 20220201
